FAERS Safety Report 12680471 (Version 1)
Quarter: 2016Q3

REPORT INFORMATION
  Report Type: Spontaneous
  Country: JP (occurrence: JP)
  Receive Date: 20160824
  Receipt Date: 20160824
  Transmission Date: 20161109
  Serious: Yes (Hospitalization, Other)
  Sender: FDA-Public Use
  Company Number: JP-PFIZER INC-2016226775

PATIENT
  Age: 54 Year
  Sex: Female
  Weight: 54.2 kg

DRUGS (3)
  1. HALCION [Suspect]
     Active Substance: TRIAZOLAM
     Dosage: UNK
     Route: 048
  2. EURODIN [Suspect]
     Active Substance: ESTAZOLAM
  3. MIGSIS [Suspect]
     Active Substance: LOMERIZINE HYDROCHLORIDE
     Dosage: UNK
     Route: 048
     Dates: start: 20160314

REACTIONS (6)
  - Overdose [Unknown]
  - Chest pain [Unknown]
  - Sinus bradycardia [Recovered/Resolved]
  - Palpitations [Unknown]
  - Electrocardiogram QT prolonged [Unknown]
  - Fall [Unknown]

NARRATIVE: CASE EVENT DATE: 20160229
